FAERS Safety Report 7840797-1 (Version None)
Quarter: 2011Q4

REPORT INFORMATION
  Report Type: 
  Country: None (occurrence: None)
  Receive Date: 20111021
  Receipt Date: 20111021
  Transmission Date: 20120403
  Serious: No
  Sender: FDA-Public Use
  Company Number: None

PATIENT
  Sex: Male

DRUGS (6)
  1. LIPITOR [Concomitant]
  2. ISENTRESS [Concomitant]
  3. EPZICOM [Concomitant]
  4. GABAPENTIN [Concomitant]
  5. METOPROLOL SUCCINATE [Suspect]
     Indication: HYPERTENSION
     Dosage: 25MG DAILY BY MOUTH
     Route: 048
     Dates: start: 20110328, end: 20110930
  6. LISINOPRIL AND HYDROCHLOROTHIAZIDE [Concomitant]

REACTIONS (2)
  - HEART RATE INCREASED [None]
  - CEREBROVASCULAR ACCIDENT [None]
